FAERS Safety Report 7090706-0 (Version None)
Quarter: 2010Q4

REPORT INFORMATION
  Report Type: 
  Country: None (occurrence: None)
  Receive Date: 20101109
  Receipt Date: 20090319
  Transmission Date: 20110411
  Serious: No
  Sender: FDA-Public Use
  Company Number: US-KINGPHARMUSA00001-K200900311

PATIENT

DRUGS (1)
  1. FLECTOR [Suspect]
     Indication: MYALGIA
     Dosage: 2 PATCH, SINGLE
     Route: 061

REACTIONS (2)
  - DRUG ADMINISTRATION ERROR [None]
  - NO ADVERSE EVENT [None]
